FAERS Safety Report 13421764 (Version 1)
Quarter: 2017Q2

REPORT INFORMATION
  Report Type: Spontaneous
  Country: IT (occurrence: IT)
  Receive Date: 20170410
  Receipt Date: 20170410
  Transmission Date: 20170830
  Serious: Yes (Other)
  Sender: FDA-Public Use
  Company Number: IT-ALEMBIC PHARMACUETICALS LIMITED-2017SCAL000294

PATIENT

DRUGS (2)
  1. LITHIUM CARBONATE. [Suspect]
     Active Substance: LITHIUM CARBONATE
     Indication: BIPOLAR II DISORDER
  2. LITHIUM CARBONATE. [Suspect]
     Active Substance: LITHIUM CARBONATE
     Indication: BIPOLAR I DISORDER
     Dosage: UNK

REACTIONS (6)
  - Hypothyroidism [Unknown]
  - Renal impairment [Unknown]
  - Bipolar disorder [Unknown]
  - Disease recurrence [Unknown]
  - Suicide attempt [Unknown]
  - Tremor [Unknown]
